FAERS Safety Report 12800552 (Version 2)
Quarter: 2016Q4

REPORT INFORMATION
  Report Type: Report from Study
  Country: None (occurrence: NZ)
  Receive Date: 20160930
  Receipt Date: 20161004
  Transmission Date: 20170207
  Serious: Yes (Life-Threatening, Hospitalization, Other)
  Sender: FDA-Public Use
  Company Number: NZ-ABBVIE-16K-118-1683338-00

PATIENT
  Sex: Female

DRUGS (2)
  1. HUMIRA [Suspect]
     Active Substance: ADALIMUMAB
     Indication: PSORIATIC ARTHROPATHY
     Route: 058
     Dates: start: 201312, end: 201605
  2. HUMIRA [Suspect]
     Active Substance: ADALIMUMAB
     Indication: PSORIASIS
     Route: 058
     Dates: end: 20160828

REACTIONS (6)
  - Drug ineffective [Unknown]
  - Mass [Unknown]
  - Post procedural haemorrhage [Unknown]
  - Psoriasis [Not Recovered/Not Resolved]
  - Post procedural infection [Unknown]
  - Anxiety [Unknown]

NARRATIVE: CASE EVENT DATE: 2016
